FAERS Safety Report 24593450 (Version 1)
Quarter: 2024Q4

REPORT INFORMATION
  Report Type: Report from Study
  Country: PA (occurrence: PA)
  Receive Date: 20241108
  Receipt Date: 20241108
  Transmission Date: 20250115
  Serious: Yes (Other)
  Sender: NOVARTIS
  Company Number: PA-002147023-NVSC2024PA208675

PATIENT
  Age: 49 Year
  Sex: Male
  Weight: 73 kg

DRUGS (1)
  1. KESIMPTA [Suspect]
     Active Substance: OFATUMUMAB
     Indication: Multiple sclerosis
     Dosage: 20 MG, QMO
     Route: 058
     Dates: start: 20241021

REACTIONS (8)
  - Asphyxia [Recovered/Resolved]
  - Pyrexia [Recovered/Resolved]
  - Feeling hot [Recovered/Resolved]
  - Chills [Recovered/Resolved]
  - Headache [Recovered/Resolved]
  - Skin burning sensation [Recovered/Resolved]
  - Palpitations [Recovered/Resolved]
  - Asthma [Recovered/Resolved]

NARRATIVE: CASE EVENT DATE: 20241021
